FAERS Safety Report 9899476 (Version 2)
Quarter: 2014Q2

REPORT INFORMATION
  Report Type: Report from Study
  Country: US (occurrence: US)
  Receive Date: 20140214
  Receipt Date: 20140603
  Transmission Date: 20141212
  Serious: Yes (Hospitalization, Other)
  Sender: FDA-Public Use
  Company Number: US-TEVA-462171USA

PATIENT
  Age: 69 Year
  Sex: Female
  Weight: 90.2 kg

DRUGS (3)
  1. DAUNORUBICIN [Suspect]
     Indication: ACUTE MYELOID LEUKAEMIA
     Dosage: 60MG/M2/DA 10-15 MIN INFUSION DAY 1,2AND3
     Route: 041
     Dates: start: 20131206
  2. CYTARABINE [Suspect]
     Indication: ACUTE MYELOID LEUKAEMIA
     Dosage: 100MG/M2/DAY X 7 DAYS: TWO INDUCTION CYCLES
     Route: 041
     Dates: start: 20131206, end: 20131222
  3. G-CSF (FILGRASTIM, AMGEN) [Suspect]
     Indication: ACUTE MYELOID LEUKAEMIA
     Dates: end: 20140120

REACTIONS (2)
  - Enterocolitis [Recovering/Resolving]
  - Enterocolitis infectious [Recovering/Resolving]
